FAERS Safety Report 15505637 (Version 2)
Quarter: 2019Q1

REPORT INFORMATION
  Report Type: Other
  Country: IT (occurrence: IT)
  Receive Date: 20181016
  Receipt Date: 20190320
  Transmission Date: 20190417
  Serious: Yes (Hospitalization)
  Sender: FDA-Public Use
  Company Number: IT-ACCORD-073190

PATIENT
  Age: 74 Year
  Sex: Male

DRUGS (8)
  1. CAPECITABINE. [Suspect]
     Active Substance: CAPECITABINE
     Indication: COLON CANCER
     Route: 048
     Dates: start: 20170101, end: 20170722
  2. PANTORC [Concomitant]
     Active Substance: PANTOPRAZOLE SODIUM
  3. ARIXTRA [Concomitant]
     Active Substance: FONDAPARINUX SODIUM
     Dosage: 10 MG/0.8 ML
  4. PRADAXA [Suspect]
     Active Substance: DABIGATRAN ETEXILATE MESYLATE
     Indication: THROMBOSIS PROPHYLAXIS
     Route: 048
     Dates: start: 20170101, end: 20170722
  5. GUTRON [Concomitant]
     Active Substance: MIDODRINE
  6. SIMVASTATIN. [Concomitant]
     Active Substance: SIMVASTATIN
  7. TARGIN [Concomitant]
     Active Substance: NALOXONE HYDROCHLORIDE\OXYCODONE HYDROCHLORIDE
  8. DELTACORTENE [Concomitant]
     Active Substance: PREDNISONE

REACTIONS (4)
  - Asthenia [Unknown]
  - Diarrhoea [Unknown]
  - Anaemia [Unknown]
  - Faeces pale [Unknown]

NARRATIVE: CASE EVENT DATE: 20170712
